FAERS Safety Report 4735009-1 (Version None)
Quarter: 2005Q3

REPORT INFORMATION
  Report Type: 
  Country: None (occurrence: None)
  Receive Date: 20050804
  Receipt Date: 20050727
  Transmission Date: 20060218
  Serious: Yes (Life-Threatening)
  Sender: FDA-Public Use
  Company Number: 216459

PATIENT
  Sex: Female

DRUGS (1)
  1. XOLAIR [Suspect]
     Indication: ASTHMA
     Dosage: 150MG, 1/MONTH, SUBCUTANEOUS
     Route: 058

REACTIONS (4)
  - DYSPNOEA [None]
  - PYREXIA [None]
  - STOMACH DISCOMFORT [None]
  - URTICARIA [None]
